FAERS Safety Report 10203861 (Version 1)
Quarter: 2014Q2

REPORT INFORMATION
  Report Type: Spontaneous
  Country: US (occurrence: US)
  Receive Date: 20140529
  Receipt Date: 20140529
  Transmission Date: 20141212
  Serious: No
  Sender: FDA-Public Use
  Company Number: US-PFIZER INC-2014147408

PATIENT
  Sex: Female

DRUGS (3)
  1. LYRICA [Suspect]
     Indication: PAIN
     Dosage: 75 MG, 2X/DAY
  2. LYRICA [Suspect]
     Indication: NERVE COMPRESSION
     Dosage: 75 MG, DAILY
  3. CORTISONE [Concomitant]
     Indication: PAIN
     Dosage: UNK

REACTIONS (2)
  - Somnolence [Unknown]
  - Drug effect incomplete [Unknown]
